FAERS Safety Report 4962873-3 (Version None)
Quarter: 2006Q2

REPORT INFORMATION
  Report Type: 
  Country: None (occurrence: None)
  Receive Date: 20060403
  Receipt Date: 20060403
  Transmission Date: 20061013
  Serious: Yes (Hospitalization)
  Sender: FDA-Public Use
  Company Number: None

PATIENT
  Age: 52 Year
  Sex: Male
  Weight: 107.5025 kg

DRUGS (1)
  1. FLECAINIDE ACETATE [Suspect]
     Indication: ATRIAL FIBRILLATION
     Dosage: 50 MG   TWICE A DAY   PO
     Route: 048
     Dates: start: 20060213, end: 20060323

REACTIONS (4)
  - DEPRESSED MOOD [None]
  - FALL [None]
  - INJURY [None]
  - NEUROPATHY PERIPHERAL [None]
